FAERS Safety Report 6227007-6 (Version None)
Quarter: 2009Q2

REPORT INFORMATION
  Report Type: 
  Country: None (occurrence: None)
  Receive Date: 20090612
  Receipt Date: 20090608
  Transmission Date: 20091009
  Serious: No
  Sender: FDA-Public Use
  Company Number: US-B.I. PHARMACEUTICALS,INC./RIDGEFIELD-2009-BP-07000BP

PATIENT
  Age: 87 Year
  Sex: Male

DRUGS (3)
  1. MICARDIS [Suspect]
  2. TOPROL-XL [Suspect]
  3. TEKTURNA [Suspect]
     Dosage: 150MG

REACTIONS (2)
  - MACULAR DEGENERATION [None]
  - VISION BLURRED [None]
